FAERS Safety Report 18618959 (Version 1)
Quarter: 2020Q4

REPORT INFORMATION
  Report Type: Spontaneous
  Country: US (occurrence: US)
  Receive Date: 20201215
  Receipt Date: 20201215
  Transmission Date: 20210114
  Serious: No
  Sender: FDA-Public Use
  Company Number: US-SUPERNUS PHARMACEUTICALS, INC.-2020SUP00539

PATIENT
  Age: 58 Year
  Sex: Female
  Weight: 64.41 kg

DRUGS (7)
  1. UNSPECIFIED VITAMINS [Concomitant]
     Active Substance: VITAMINS
  2. OXTELLAR XR [Suspect]
     Active Substance: OXCARBAZEPINE
     Indication: SEIZURE
     Dosage: 300 MG, ONCE
     Dates: start: 20201021, end: 20201021
  3. LISINOPRIL. [Concomitant]
     Active Substance: LISINOPRIL
  4. PROGESTERONE. [Concomitant]
     Active Substance: PROGESTERONE
  5. IMVEXXY [Concomitant]
     Active Substance: ESTRADIOL
  6. ESTROGEN PATCH [Concomitant]
     Active Substance: ESTRADIOL
  7. ASPIRIN. [Concomitant]
     Active Substance: ASPIRIN

REACTIONS (4)
  - Hypoaesthesia [Not Recovered/Not Resolved]
  - Hypoaesthesia oral [Not Recovered/Not Resolved]
  - Eye pruritus [Not Recovered/Not Resolved]
  - Pruritus [Not Recovered/Not Resolved]

NARRATIVE: CASE EVENT DATE: 20201021
